FAERS Safety Report 15518349 (Version 6)
Quarter: 2021Q2

REPORT INFORMATION
  Report Type: Report from Study
  Country: None (occurrence: IL)
  Receive Date: 20181017
  Receipt Date: 20210505
  Transmission Date: 20210716
  Serious: Yes (Hospitalization, Other)
  Sender: FDA-Public Use
  Company Number: IL-ABBVIE-18K-082-2520926-00

PATIENT
  Age: 32 Year
  Sex: Male

DRUGS (3)
  1. HUMIRA [Suspect]
     Active Substance: ADALIMUMAB
     Indication: CROHN^S DISEASE
     Dosage: LOADING DOSE
     Route: 058
     Dates: start: 20181008, end: 20181008
  2. HUMIRA [Suspect]
     Active Substance: ADALIMUMAB
     Route: 058
     Dates: start: 2018, end: 2018
  3. CIMZIA [Suspect]
     Active Substance: CERTOLIZUMAB PEGOL
     Indication: PRODUCT USED FOR UNKNOWN INDICATION
     Route: 065

REACTIONS (24)
  - Fistula inflammation [Not Recovered/Not Resolved]
  - Abdominal pain [Not Recovered/Not Resolved]
  - Intestinal prolapse [Unknown]
  - Lack of injection site rotation [Unknown]
  - Somnolence [Unknown]
  - Vomiting [Not Recovered/Not Resolved]
  - Depression [Not Recovered/Not Resolved]
  - Diarrhoea [Not Recovered/Not Resolved]
  - Suicidal ideation [Unknown]
  - Frequent bowel movements [Not Recovered/Not Resolved]
  - Infection susceptibility increased [Unknown]
  - Drug ineffective [Not Recovered/Not Resolved]
  - Nasopharyngitis [Unknown]
  - Malaise [Not Recovered/Not Resolved]
  - Anxiety [Unknown]
  - Mood altered [Unknown]
  - Proctalgia [Not Recovered/Not Resolved]
  - Proctalgia [Not Recovered/Not Resolved]
  - Constipation [Not Recovered/Not Resolved]
  - Fatigue [Unknown]
  - Asthenia [Unknown]
  - Abdominal discomfort [Not Recovered/Not Resolved]
  - Decreased appetite [Unknown]
  - Agitation [Not Recovered/Not Resolved]

NARRATIVE: CASE EVENT DATE: 2018
